FAERS Safety Report 21720310 (Version 1)
Quarter: 2022Q4

REPORT INFORMATION
  Report Type: Report from Study
  Country: US (occurrence: US)
  Receive Date: 20221213
  Receipt Date: 20221213
  Transmission Date: 20230112
  Serious: No
  Sender: FDA-Public Use
  Company Number: US-ABBVIE-4195190

PATIENT
  Sex: Female

DRUGS (5)
  1. HUMIRA [Suspect]
     Active Substance: ADALIMUMAB
     Indication: Crohn^s disease
     Dosage: 40MG/0.8 ML INJECT 80 MG ALTERNATING WITH 40 MG SUBCUTA NEOUSLY PER WEEK
     Route: 058
     Dates: start: 2009
  2. FAMOTIDINE [Concomitant]
     Active Substance: FAMOTIDINE
     Indication: Product used for unknown indication
  3. DIGESTIVE ADVANTAGE [Concomitant]
     Indication: Product used for unknown indication
  4. POTASSIUM [Concomitant]
     Active Substance: POTASSIUM
     Indication: Product used for unknown indication
  5. covid-19 vaccination [Concomitant]
     Indication: COVID-19 immunisation
     Dosage: ONE IN ONCE
     Route: 030

REACTIONS (5)
  - Gastrointestinal inflammation [Unknown]
  - Therapeutic product effect decreased [Unknown]
  - Lethargy [Unknown]
  - Influenza [Unknown]
  - Feeling abnormal [Unknown]
